FAERS Safety Report 12528992 (Version 1)
Quarter: 2016Q3

REPORT INFORMATION
  Report Type: Spontaneous
  Country: US (occurrence: US)
  Receive Date: 20160705
  Receipt Date: 20160705
  Transmission Date: 20161109
  Serious: Yes (Hospitalization)
  Sender: FDA-Public Use
  Company Number: US-BAUSCH-BL-2016-015810

PATIENT
  Age: 45 Year
  Sex: Female

DRUGS (1)
  1. XIFAXAN [Suspect]
     Active Substance: RIFAXIMIN
     Indication: PRODUCT USED FOR UNKNOWN INDICATION
     Route: 048
     Dates: start: 20160129

REACTIONS (5)
  - Anxiety [Unknown]
  - Anaemia [Unknown]
  - Nausea [Unknown]
  - Depression [Unknown]
  - Vomiting [Unknown]

NARRATIVE: CASE EVENT DATE: 201603
